FAERS Safety Report 24185854 (Version 1)
Quarter: 2024Q3

REPORT INFORMATION
  Report Type: Spontaneous
  Country: US (occurrence: US)
  Receive Date: 20240807
  Receipt Date: 20240807
  Transmission Date: 20241017
  Serious: No
  Sender: PRINSTON PHARMACEUTICAL
  Company Number: US-PRINSTON PHARMACEUTICAL INC.-2023PRN00468

PATIENT
  Age: 83 Year
  Sex: Female

DRUGS (6)
  1. CLONAZEPAM [Suspect]
     Active Substance: CLONAZEPAM
     Dosage: UNK, 3X/DAY
  2. LORAZEPAM [Suspect]
     Active Substance: LORAZEPAM
     Dosage: 2 TABLETS (0.25 MG), 2X/DAY
     Dates: start: 2023
  3. LORAZEPAM [Suspect]
     Active Substance: LORAZEPAM
     Dosage: 0.5 MG, NIGHT AT 7:00PM 1X/DAY
     Dates: start: 2023
  4. LORAZEPAM [Suspect]
     Active Substance: LORAZEPAM
     Dosage: 4 TABLETS PER DAY
     Dates: start: 2023
  5. LORAZEPAM [Suspect]
     Active Substance: LORAZEPAM
     Dosage: 2 TABLETS (0.25 MG), 2X/DAY
  6. LORAZEPAM [Suspect]
     Active Substance: LORAZEPAM
     Dosage: 0.5 MG, NIGHT AT 7:00PM 1X/DAY

REACTIONS (3)
  - Memory impairment [Recovering/Resolving]
  - Somnolence [Recovering/Resolving]
  - Thinking abnormal [Recovering/Resolving]

NARRATIVE: CASE EVENT DATE: 20230919
